FAERS Safety Report 7868145-1 (Version None)
Quarter: 2011Q4

REPORT INFORMATION
  Report Type: 
  Country: None (occurrence: None)
  Receive Date: 20111028
  Receipt Date: 20111014
  Transmission Date: 20120403
  Serious: Yes (Other)
  Sender: FDA-Public Use
  Company Number: US-ELI_LILLY_AND_COMPANY-US201110004965

PATIENT
  Age: 62 Year
  Sex: Male

DRUGS (2)
  1. CYMBALTA [Suspect]
     Dosage: 30 MG, QD
     Dates: start: 20111013
  2. CYMBALTA [Suspect]
     Indication: DEPRESSION
     Dosage: 30 MG, BID
     Dates: start: 20060101, end: 20060101

REACTIONS (14)
  - URINARY RETENTION [None]
  - DRUG EFFECT DECREASED [None]
  - SINUS HEADACHE [None]
  - CONSTIPATION [None]
  - HEADACHE [None]
  - WEIGHT INCREASED [None]
  - AGITATION [None]
  - NAUSEA [None]
  - CHROMATURIA [None]
  - VISION BLURRED [None]
  - PUPILS UNEQUAL [None]
  - NERVOUSNESS [None]
  - CHILLS [None]
  - INSOMNIA [None]
